FAERS Safety Report 9758132 (Version 3)
Quarter: 2014Q1

REPORT INFORMATION
  Report Type: Spontaneous
  Country: US (occurrence: US)
  Receive Date: 20131216
  Receipt Date: 20140214
  Transmission Date: 20141002
  Serious: Yes (Hospitalization)
  Sender: FDA-Public Use
  Company Number: US-BAYER-2013-150555

PATIENT
  Age: 43 Year
  Sex: Female
  Weight: 93.42 kg

DRUGS (5)
  1. MIRENA [Suspect]
     Indication: CONTRACEPTION
     Dosage: 20 MCG/24HR, CONT
     Route: 015
     Dates: start: 20110706, end: 20130520
  2. CYMBALTA [Concomitant]
     Dosage: 60 MG, BID
  3. LORAZEPAM [Concomitant]
     Dosage: 1 MG, ONCE A DAY AS NEEDED
  4. FLEXERIL [Concomitant]
     Dosage: 5 MG, ONCE A DAY AS NEEDED
  5. ALPRAZOLAM [Concomitant]

REACTIONS (10)
  - Embedded device [None]
  - Abdominal pain lower [None]
  - Weight increased [None]
  - Device difficult to use [None]
  - Device difficult to use [None]
  - Pelvic pain [None]
  - Device dislocation [None]
  - Injury [None]
  - Emotional distress [None]
  - Vaginal haemorrhage [None]
